FAERS Safety Report 7101610-3 (Version None)
Quarter: 2010Q4

REPORT INFORMATION
  Report Type: 
  Country: None (occurrence: None)
  Receive Date: 20101109
  Receipt Date: 20101027
  Transmission Date: 20110411
  Serious: Yes (Hospitalization)
  Sender: FDA-Public Use
  Company Number: 2010P1002202

PATIENT
  Age: 14 Year
  Sex: Female

DRUGS (4)
  1. SOLODYN [Suspect]
     Indication: ACNE
     Dosage: 90 MG;QD;PO ; 65 MG;QD;PO
     Route: 048
     Dates: start: 20100601, end: 20100801
  2. SOLODYN [Suspect]
     Indication: ACNE
     Dosage: 90 MG;QD;PO ; 65 MG;QD;PO
     Route: 048
     Dates: start: 20100801, end: 20101001
  3. CON MEDS [Concomitant]
  4. PREV MEDS [Concomitant]

REACTIONS (1)
  - GASTRITIS [None]
